FAERS Safety Report 24885803 (Version 1)
Quarter: 2025Q1

REPORT INFORMATION
  Report Type: Spontaneous
  Country: NZ (occurrence: NZ)
  Receive Date: 20250125
  Receipt Date: 20250125
  Transmission Date: 20250408
  Serious: Yes (Hospitalization, Other)
  Sender: MERCK
  Company Number: NZ-009507513-2501NZL008342

PATIENT
  Age: 54 Year
  Sex: Male

DRUGS (12)
  1. SUGAMMADEX SODIUM [Suspect]
     Active Substance: SUGAMMADEX SODIUM
     Indication: Intraoperative care
     Route: 042
     Dates: start: 20241222, end: 20241222
  2. ROCURONIUM BROMIDE [Concomitant]
     Active Substance: ROCURONIUM BROMIDE
     Indication: General anaesthesia
     Route: 042
     Dates: start: 20241222, end: 20241222
  3. ALFENTANIL [Concomitant]
     Active Substance: ALFENTANIL
     Route: 042
     Dates: start: 20241222, end: 20241222
  4. FENTANYL [Concomitant]
     Active Substance: FENTANYL
     Indication: General anaesthesia
     Route: 042
     Dates: start: 20241222, end: 20241222
  5. KETAMINE [Concomitant]
     Active Substance: KETAMINE
     Indication: General anaesthesia
     Route: 042
     Dates: start: 20241222, end: 20241222
  6. LIDOCAINE [Concomitant]
     Active Substance: LIDOCAINE
     Indication: General anaesthesia
     Route: 042
     Dates: start: 20241222, end: 20241222
  7. METARAMINOL [Concomitant]
     Active Substance: METARAMINOL
     Route: 042
     Dates: start: 20241222, end: 20241222
  8. MIDAZOLAM [Concomitant]
     Active Substance: MIDAZOLAM
     Route: 042
     Dates: start: 20241222, end: 20241222
  9. MORPHINE [Concomitant]
     Active Substance: MORPHINE
     Route: 042
     Dates: start: 20241222, end: 20241222
  10. ONDANSETRON [Concomitant]
     Active Substance: ONDANSETRON
     Route: 042
     Dates: start: 20241222, end: 20241222
  11. PIPERACILLIN SODIUM\TAZOBACTAM SODIUM [Concomitant]
     Active Substance: PIPERACILLIN SODIUM\TAZOBACTAM SODIUM
     Indication: Antibiotic therapy
     Route: 042
     Dates: start: 20241222, end: 20241222
  12. PROPOFOL [Concomitant]
     Active Substance: PROPOFOL
     Indication: General anaesthesia
     Route: 042
     Dates: start: 20241222, end: 20241222

REACTIONS (2)
  - Sepsis [Recovered/Resolved]
  - Anaphylactic reaction [Recovered/Resolved]

NARRATIVE: CASE EVENT DATE: 20241222
